FAERS Safety Report 8495215-X (Version None)
Quarter: 2012Q2

REPORT INFORMATION
  Report Type: 
  Country: None (occurrence: None)
  Receive Date: 20120405
  Receipt Date: 20100525
  Transmission Date: 20120825
  Serious: Yes (Other)
  Sender: FDA-Public Use
  Company Number: PHHY2010US18707

PATIENT
  Age: 67 Year
  Sex: Male
  Weight: 55.3 kg

DRUGS (8)
  1. LEXAPRO [Concomitant]
  2. PULMICORT [Concomitant]
  3. MIRAPEX [Concomitant]
  4. SPIRIVA [Concomitant]
  5. TEMAZEPAM [Concomitant]
  6. ALBUTEROL [Concomitant]
  7. PRAVASTATIN [Concomitant]
  8. RECLAST [Suspect]
     Indication: OSTEOPOROSIS
     Dosage: 5 MG, ONCE/SINGLE, IV INFUSION
     Dates: start: 20100312, end: 20100312

REACTIONS (4)
  - EYE SWELLING [None]
  - OCULAR HYPERAEMIA [None]
  - UVEITIS [None]
  - EYE PAIN [None]
